FAERS Safety Report 20126679 (Version 1)
Quarter: 2021Q4

REPORT INFORMATION
  Report Type: Spontaneous
  Country: US (occurrence: None)
  Receive Date: 20211129
  Receipt Date: 20211129
  Transmission Date: 20220303
  Serious: No
  Sender: FDA-Public Use
  Company Number: None

PATIENT
  Age: 74 Year
  Sex: Female

DRUGS (1)
  1. FORTEO [Suspect]
     Active Substance: TERIPARATIDE
     Indication: Senile osteoporosis
     Dosage: OTHER QUANTITY : 20MCG;?FREQUENCY : DAILY;?
     Route: 058
     Dates: start: 202111, end: 202111

REACTIONS (5)
  - Nausea [None]
  - Dyspepsia [None]
  - Headache [None]
  - Dry mouth [None]
  - Skin disorder [None]

NARRATIVE: CASE EVENT DATE: 20211101
